FAERS Safety Report 4287009-6 (Version None)
Quarter: 2004Q1

REPORT INFORMATION
  Report Type: 
  Country: None (occurrence: None)
  Receive Date: 20040205
  Receipt Date: 20040127
  Transmission Date: 20041129
  Serious: Yes (Hospitalization)
  Sender: FDA-Public Use
  Company Number: USA-2004-0012636

PATIENT
  Age: 59 Year
  Sex: Male

DRUGS (14)
  1. OXYCONTIN [Suspect]
     Indication: PAIN
     Dosage: 60 MG, BID
  2. TRACLEER [Suspect]
     Indication: PULMONARY HYPERTENSION
     Dosage: 62.5 MG, BID, ORAL
     Route: 048
     Dates: start: 20031101, end: 20031217
  3. PERCOCET [Suspect]
     Indication: PAIN
     Dosage: 2 TABLET, Q4H
  4. NEURONTIN [Suspect]
     Indication: PAIN
     Dosage: 200 MG, TID, ORAL
     Route: 048
  5. COUMADIN [Concomitant]
  6. LASIX [Concomitant]
  7. ZAROXOLYN [Concomitant]
  8. PREDNISONE [Concomitant]
  9. EPOPROSTENOL (EPOPROSTENOL) [Concomitant]
  10. PROTONIX [Concomitant]
  11. GLUCOPHAGE [Concomitant]
  12. BACTRIM [Concomitant]
  13. OXYGEN (OXYGEN) [Concomitant]
  14. LISINOPRIL [Concomitant]

REACTIONS (11)
  - BLOOD BICARBONATE INCREASED [None]
  - BLOOD CHLORIDE DECREASED [None]
  - BLOOD CREATININE INCREASED [None]
  - BLOOD SODIUM DECREASED [None]
  - BLOOD UREA INCREASED [None]
  - ENCEPHALOPATHY [None]
  - MENTAL STATUS CHANGES [None]
  - MYOCLONUS [None]
  - OEDEMA PERIPHERAL [None]
  - PAIN [None]
  - SOMNOLENCE [None]
